FAERS Safety Report 5256655-5 (Version None)
Quarter: 2007Q1

REPORT INFORMATION
  Report Type: 
  Country: None (occurrence: None)
  Receive Date: 20070306
  Receipt Date: 20070223
  Transmission Date: 20070707
  Serious: Yes (Other)
  Sender: FDA-Public Use
  Company Number: US-ELI_LILLY_AND_COMPANY-US200702004931

PATIENT
  Age: 56 Year
  Sex: Male

DRUGS (8)
  1. HUMALOG MIX 75/25 [Suspect]
     Dosage: 16 U, EACH MORNING
     Dates: start: 20020101
  2. HUMALOG MIX 75/25 [Suspect]
     Dosage: 10 U, EACH EVENING
     Dates: start: 20020101
  3. METFORMIN HCL [Concomitant]
  4. ACTOS /USA/ [Concomitant]
  5. LISINOPRIL [Concomitant]
  6. LIPITOR [Concomitant]
  7. SYNTHROID [Concomitant]
     Indication: THYROIDECTOMY
  8. PREVACID [Concomitant]

REACTIONS (2)
  - BLOOD GLUCOSE INCREASED [None]
  - GOITRE [None]
